FAERS Safety Report 21708867 (Version 2)
Quarter: 2022Q4

REPORT INFORMATION
  Report Type: Spontaneous
  Country: US (occurrence: US)
  Receive Date: 20221210
  Receipt Date: 20221220
  Transmission Date: 20230113
  Serious: Yes (Other)
  Sender: FDA-Public Use
  Company Number: US-002147023-NVSC2022US284642

PATIENT
  Sex: Female
  Weight: 108.8 kg

DRUGS (1)
  1. COSENTYX [Suspect]
     Active Substance: SECUKINUMAB
     Indication: Psoriasis
     Dosage: 150 MG, EVERY 4 WEEKS
     Route: 058

REACTIONS (3)
  - Sepsis [Unknown]
  - Urinary tract infection [Unknown]
  - Anger [Unknown]
